FAERS Safety Report 9363626 (Version 1)
Quarter: 2013Q2

REPORT INFORMATION
  Report Type: Spontaneous
  Country: US (occurrence: US)
  Receive Date: 20130624
  Receipt Date: 20130624
  Transmission Date: 20140414
  Serious: Yes (Life-Threatening, Hospitalization, Other)
  Sender: FDA-Public Use
  Company Number: US-JNJFOC-20120714766

PATIENT
  Age: 3 Year
  Sex: Female

DRUGS (4)
  1. CHILDREN^S MOTRIN [Suspect]
     Route: 048
  2. CHILDREN^S MOTRIN [Suspect]
     Indication: FRACTURE PAIN
     Route: 048
     Dates: start: 201007
  3. TYLENOL [Suspect]
     Route: 065
  4. TYLENOL [Suspect]
     Indication: FRACTURE PAIN
     Route: 065
     Dates: start: 201007

REACTIONS (7)
  - Stevens-Johnson syndrome [Recovering/Resolving]
  - Toxic epidermal necrolysis [Unknown]
  - Neutropenia [Recovered/Resolved]
  - Haematuria [Recovered/Resolved]
  - Keratitis [Unknown]
  - Trichiasis [Unknown]
  - Corneal scar [Unknown]
